FAERS Safety Report 7001458-4 (Version None)
Quarter: 2010Q3

REPORT INFORMATION
  Report Type: 
  Country: None (occurrence: None)
  Receive Date: 20100920
  Receipt Date: 20100512
  Transmission Date: 20110219
  Serious: Yes (Other)
  Sender: FDA-Public Use
  Company Number: US-ASTRAZENECA-2010SE21714

PATIENT
  Age: 45 Year
  Sex: Female
  Weight: 90.3 kg

DRUGS (8)
  1. SEROQUEL XR [Suspect]
     Indication: BIPOLAR DISORDER
     Route: 048
  2. SEROQUEL XR [Suspect]
     Indication: SCHIZOPHRENIA
     Route: 048
  3. SEROQUEL XR [Suspect]
     Route: 048
  4. SEROQUEL XR [Suspect]
     Route: 048
  5. WELLBUTRIN [Concomitant]
  6. LEXAPRO [Concomitant]
  7. XANAX [Concomitant]
     Indication: ANXIETY
  8. AMBIEN [Concomitant]

REACTIONS (4)
  - ABDOMINAL DISCOMFORT [None]
  - NIGHTMARE [None]
  - SUICIDAL IDEATION [None]
  - WEIGHT INCREASED [None]
